FAERS Safety Report 18365100 (Version 2)
Quarter: 2020Q4

REPORT INFORMATION
  Report Type: Spontaneous
  Country: US (occurrence: US)
  Receive Date: 20201009
  Receipt Date: 20201021
  Transmission Date: 20210114
  Serious: Yes (Death, Congenital Anomaly, Other)
  Sender: FDA-Public Use
  Company Number: US-VISTAPHARM, INC.-VER202010-001709

PATIENT
  Sex: Male

DRUGS (1)
  1. METHADONE [Suspect]
     Active Substance: METHADONE HYDROCHLORIDE
     Dosage: UNKNOWN
     Route: 064

REACTIONS (9)
  - Brain oedema [Unknown]
  - Gliosis [Unknown]
  - Foetal exposure during pregnancy [Fatal]
  - Vena cava thrombosis [Unknown]
  - Hypoxic-ischaemic encephalopathy [Unknown]
  - Hypoperfusion [Unknown]
  - Cerebral congestion [Unknown]
  - Renal vein thrombosis [Unknown]
  - Bradycardia foetal [Fatal]
